FAERS Safety Report 16624928 (Version 1)
Quarter: 2019Q3

REPORT INFORMATION
  Report Type: Spontaneous
  Country: US (occurrence: US)
  Receive Date: 20190611
  Receipt Date: 20190611
  Transmission Date: 20191004
  Serious: Yes (Hospitalization)
  Sender: FDA-Public Use
  Company Number: None

PATIENT
  Age: 88 Year
  Sex: Male

DRUGS (20)
  1. PANTOPRAZOLE [Concomitant]
     Active Substance: PANTOPRAZOLE
  2. GLYCOPYRROL [Concomitant]
  3. WIXELA INHUB AER [Concomitant]
  4. TAMSULOSIN [Concomitant]
     Active Substance: TAMSULOSIN
  5. ABIRATERONE ACETATE 250MG TAB [Suspect]
     Active Substance: ABIRATERONE ACETATE
     Indication: PROSTATE CANCER
     Route: 048
     Dates: start: 20190115
  6. HEPARIN [Concomitant]
     Active Substance: HEPARIN SODIUM
  7. CALCIUM [Concomitant]
     Active Substance: CALCIUM
  8. VITAMINE D-3 [Concomitant]
  9. POT CHLORIDE [Concomitant]
     Active Substance: POTASSIUM CHLORIDE
  10. XGEVA [Concomitant]
     Active Substance: DENOSUMAB
  11. PREDNISONE. [Concomitant]
     Active Substance: PREDNISONE
  12. TRAMADOL. [Concomitant]
     Active Substance: TRAMADOL
  13. ELIGARD [Concomitant]
     Active Substance: LEUPROLIDE ACETATE
  14. XARELTO [Concomitant]
     Active Substance: RIVAROXABAN
  15. DOCUSATE SOD [Concomitant]
  16. PROBIOTIC [Concomitant]
     Active Substance: PROBIOTICS NOS
  17. DALIRESP [Concomitant]
     Active Substance: ROFLUMILAST
  18. FUROSEMIDE. [Concomitant]
     Active Substance: FUROSEMIDE
  19. CELECOXIB. [Concomitant]
     Active Substance: CELECOXIB
  20. SPIRIVA [Concomitant]
     Active Substance: TIOTROPIUM BROMIDE MONOHYDRATE

REACTIONS (3)
  - Pneumonia [None]
  - Gastric ulcer [None]
  - Gait disturbance [None]

NARRATIVE: CASE EVENT DATE: 20190425
